FAERS Safety Report 9318825 (Version 1)
Quarter: 2013Q2

REPORT INFORMATION
  Report Type: Spontaneous
  Country: US (occurrence: US)
  Receive Date: 20130530
  Receipt Date: 20130530
  Transmission Date: 20140414
  Serious: Yes (Hospitalization)
  Sender: FDA-Public Use
  Company Number: US-JNJFOC-20130513395

PATIENT
  Age: 71 Year
  Sex: Male
  Weight: 93.44 kg

DRUGS (2)
  1. XARELTO [Suspect]
     Indication: CARDIOVERSION
     Route: 048
     Dates: start: 201301, end: 201302
  2. METOPROLOL [Concomitant]
     Indication: BLOOD PRESSURE
     Route: 048

REACTIONS (2)
  - Pancreatitis [Recovered/Resolved]
  - Abnormal loss of weight [Not Recovered/Not Resolved]
